FAERS Safety Report 4661956-5 (Version None)
Quarter: 2005Q2

REPORT INFORMATION
  Report Type: 
  Country: None (occurrence: None)
  Receive Date: 20050511
  Receipt Date: 20050511
  Transmission Date: 20051028
  Serious: Yes (Hospitalization)
  Sender: FDA-Public Use
  Company Number: None

PATIENT
  Age: 57 Year
  Sex: Male

DRUGS (8)
  1. METOPROLOL SUCCINATE [Suspect]
     Indication: HYPERTENSION
     Dosage: 25 MG BID
     Dates: start: 20000801
  2. AMITRIPTYLINE [Concomitant]
  3. BACLOFEN [Concomitant]
  4. ISOSORBIDE [Concomitant]
  5. LORATADINE [Concomitant]
  6. NITROGLYCERIN [Concomitant]
  7. RANITIDINE [Concomitant]
  8. POTASSIUM CHLORIDE [Concomitant]

REACTIONS (3)
  - DIZZINESS [None]
  - FATIGUE [None]
  - LETHARGY [None]
